FAERS Safety Report 12695302 (Version 4)
Quarter: 2020Q2

REPORT INFORMATION
  Report Type: Spontaneous
  Country: US (occurrence: US)
  Receive Date: 20160829
  Receipt Date: 20200518
  Transmission Date: 20200713
  Serious: Yes (Death, Hospitalization)
  Sender: FDA-Public Use
  Company Number: US-JNJFOC-20160818230

PATIENT
  Age: 75 Year
  Sex: Male

DRUGS (2)
  1. XARELTO [Suspect]
     Active Substance: RIVAROXABAN
     Indication: ATRIAL FIBRILLATION
     Route: 048
     Dates: start: 20130802, end: 20130906
  2. XARELTO [Suspect]
     Active Substance: RIVAROXABAN
     Indication: CEREBROVASCULAR ACCIDENT PROPHYLAXIS

REACTIONS (7)
  - Conjunctival haemorrhage [Unknown]
  - Bloody discharge [Unknown]
  - Spinal cord haemorrhage [Recovering/Resolving]
  - Wound haemorrhage [Unknown]
  - Haematoma [Unknown]
  - Contusion [Unknown]
  - Urethral haemorrhage [Unknown]

NARRATIVE: CASE EVENT DATE: 201309
